FAERS Safety Report 19513897 (Version 1)
Quarter: 2021Q3

REPORT INFORMATION
  Report Type: Spontaneous
  Country: ES (occurrence: ES)
  Receive Date: 20210709
  Receipt Date: 20210709
  Transmission Date: 20211014
  Serious: Yes (Hospitalization, Other)
  Sender: FDA-Public Use
  Company Number: ES-IPSEN BIOPHARMACEUTICALS, INC.-2021-16197

PATIENT
  Age: 52 Year
  Sex: Male
  Weight: 59.1 kg

DRUGS (6)
  1. SOMATULINE AUTOGEL [Suspect]
     Active Substance: LANREOTIDE ACETATE
     Route: 065
  2. SOMATULINE AUTOGEL [Suspect]
     Active Substance: LANREOTIDE ACETATE
     Indication: NEUROENDOCRINE CARCINOMA METASTATIC
     Route: 065
     Dates: start: 20121002
  3. OCTREOTIDE. [Concomitant]
     Active Substance: OCTREOTIDE
  4. SOMATULINE AUTOGEL [Suspect]
     Active Substance: LANREOTIDE ACETATE
     Indication: CARCINOID SYNDROME
     Route: 065
  5. FENTANYL. [Concomitant]
     Active Substance: FENTANYL
     Indication: PAIN
  6. SOMATULINE AUTOGEL [Suspect]
     Active Substance: LANREOTIDE ACETATE
     Route: 065

REACTIONS (13)
  - Malnutrition [Recovering/Resolving]
  - Neoplasm progression [Unknown]
  - Off label use [Unknown]
  - Weight decreased [Unknown]
  - Ascites [Unknown]
  - Pneumonia aspiration [Unknown]
  - Metastases to bone [Unknown]
  - Renal impairment [Recovering/Resolving]
  - Condition aggravated [Unknown]
  - Vomiting [Unknown]
  - General physical health deterioration [Unknown]
  - Metastases to lung [Unknown]
  - Paratracheal lymphadenopathy [Unknown]

NARRATIVE: CASE EVENT DATE: 20160512
